FAERS Safety Report 6829149-0 (Version None)
Quarter: 2010Q3

REPORT INFORMATION
  Report Type: 
  Country: None (occurrence: None)
  Receive Date: 20100709
  Receipt Date: 20070305
  Transmission Date: 20110219
  Serious: Yes (Other)
  Sender: FDA-Public Use
  Company Number: US-PFIZER INC-2007018084

PATIENT
  Sex: Female
  Weight: 73.5 kg

DRUGS (16)
  1. CHANTIX [Suspect]
     Indication: EX-TOBACCO USER
     Dates: start: 20070101
  2. CYMBALTA [Interacting]
     Indication: DEPRESSION
  3. CYMBALTA [Interacting]
     Indication: PAIN
  4. ASACOL [Concomitant]
  5. HYOSCYAMINE [Concomitant]
  6. CALCIUM WITH VITAMIN D [Concomitant]
  7. DOCUSATE SODIUM [Concomitant]
  8. OMEPRAZOLE [Concomitant]
  9. METFORMIN HCL [Concomitant]
  10. LISINOPRIL [Concomitant]
  11. LIPITOR [Concomitant]
  12. VERAPAMIL - SLOW RELEASE [Concomitant]
  13. AZMACORT [Concomitant]
     Route: 055
  14. ALBUTEROL [Concomitant]
     Route: 055
  15. ATROVENT [Concomitant]
     Route: 055
  16. NOVOLIN [Concomitant]
     Dosage: 70/30
     Route: 058

REACTIONS (8)
  - DEPRESSION [None]
  - DRUG INTERACTION [None]
  - HYPERPHAGIA [None]
  - NAUSEA [None]
  - PAIN [None]
  - VISUAL IMPAIRMENT [None]
  - VOMITING [None]
  - WEIGHT INCREASED [None]
